FAERS Safety Report 9530757 (Version 1)
Quarter: 2013Q3

REPORT INFORMATION
  Report Type: Spontaneous
  Country: US (occurrence: None)
  Receive Date: 20130916
  Receipt Date: 20130916
  Transmission Date: 20140515
  Serious: Yes (Life-Threatening, Hospitalization, Other)
  Sender: FDA-Public Use
  Company Number: None

PATIENT
  Age: 16 Year
  Sex: Male
  Weight: 57.9 kg

DRUGS (12)
  1. CLOZAPINE [Suspect]
     Indication: MENTAL DISORDER
     Dosage: 50 MG QAM 100 MG QPM, BID, ORAL
     Route: 048
  2. DEXMETHYLPHENIDATE [Concomitant]
  3. PROPRANOLOL [Concomitant]
  4. CLOZAPINE [Concomitant]
  5. GUANFACINE [Concomitant]
  6. ALBUTEROL [Concomitant]
  7. BECLOMETHAZONE [Concomitant]
  8. OLANZAPINE [Concomitant]
  9. LEVOTHYROXINE [Concomitant]
  10. TRAZODONE [Concomitant]
  11. LITHIUM [Concomitant]
  12. DIVALPROEX SODIUM [Concomitant]

REACTIONS (9)
  - Abdominal pain [None]
  - Diarrhoea [None]
  - Vomiting [None]
  - Unresponsive to stimuli [None]
  - Apnoea [None]
  - Respiratory depression [None]
  - Sepsis [None]
  - Megacolon [None]
  - Gastrointestinal disorder [None]
